FAERS Safety Report 13775091 (Version 1)
Quarter: 2017Q3

REPORT INFORMATION
  Report Type: Spontaneous
  Country: FR (occurrence: FR)
  Receive Date: 20170720
  Receipt Date: 20170720
  Transmission Date: 20171127
  Serious: Yes (Hospitalization)
  Sender: FDA-Public Use
  Company Number: US-ASTRAZENECA-2017SE74113

PATIENT
  Age: 82 Year
  Sex: Female

DRUGS (4)
  1. ESOMEPRAZOLE MAGNESIUM. [Suspect]
     Active Substance: ESOMEPRAZOLE MAGNESIUM
     Indication: DYSPEPSIA
     Route: 048
     Dates: start: 20170525, end: 20170616
  2. VERATRAN [Suspect]
     Active Substance: CLOTIAZEPAM
     Indication: INSOMNIA
     Route: 048
     Dates: end: 20170616
  3. NORDAZ [Suspect]
     Active Substance: NORDAZEPAM
     Indication: ANXIETY
     Route: 048
     Dates: start: 20170511, end: 20170616
  4. METOPIMAZINE [Suspect]
     Active Substance: METOPIMAZINE
     Indication: DYSPEPSIA
     Route: 048
     Dates: start: 20170525, end: 20170616

REACTIONS (5)
  - Hyponatraemia [Recovering/Resolving]
  - Nausea [Recovering/Resolving]
  - Confusional state [Recovering/Resolving]
  - Dyspepsia [Recovering/Resolving]
  - Inappropriate antidiuretic hormone secretion [Recovering/Resolving]

NARRATIVE: CASE EVENT DATE: 201705
